FAERS Safety Report 6063877-2 (Version None)
Quarter: 2009Q1

REPORT INFORMATION
  Report Type: 
  Country: None (occurrence: None)
  Receive Date: 20090130
  Receipt Date: 20090115
  Transmission Date: 20090719
  Serious: Yes (Hospitalization, Other)
  Sender: FDA-Public Use
  Company Number: DSU-2008-02107

PATIENT
  Age: 63 Year
  Sex: Male

DRUGS (4)
  1. BENICAR [Suspect]
     Indication: HYPERTENSION
     Dosage: 20 MG (20 MG, QD), PER ORAL
     Route: 048
     Dates: start: 20081202, end: 20081202
  2. BENICAR HCT (HYDROCHOLORTHIAIZIDE, OLMESARTAN MEDOXOMIL) [Suspect]
     Indication: HYPERTENSION
     Dosage: 40/25MG (QD), PER ORAL
     Route: 048
     Dates: start: 20060101, end: 20081117
  3. BETAXOLOL [Concomitant]
  4. NORVASC [Concomitant]

REACTIONS (8)
  - ALCOHOL USE [None]
  - BLOOD PRESSURE IMMEASURABLE [None]
  - COELIAC DISEASE [None]
  - DEHYDRATION [None]
  - DIZZINESS [None]
  - FALL [None]
  - HYPOTENSION [None]
  - NAUSEA [None]
